FAERS Safety Report 22021708 (Version 1)
Quarter: 2023Q1

REPORT INFORMATION
  Report Type: Spontaneous
  Country: CA (occurrence: CA)
  Receive Date: 20230222
  Receipt Date: 20230222
  Transmission Date: 20230417
  Serious: Yes (Other)
  Sender: FDA-Public Use
  Company Number: CA-002147023-NVSC2023CA035904

PATIENT
  Age: 30 Year
  Sex: Female

DRUGS (15)
  1. MYCOPHENOLATE MOFETIL [Suspect]
     Active Substance: MYCOPHENOLATE MOFETIL
     Indication: Inflammatory pseudotumour
     Dosage: 1 G, BID
     Route: 048
  2. RITUXIMAB [Suspect]
     Active Substance: RITUXIMAB
     Indication: Vasculitis
     Dosage: 711 MG, QW
     Route: 042
  3. RITUXIMAB [Suspect]
     Active Substance: RITUXIMAB
     Indication: Inflammatory pseudotumour
     Dosage: 711 MG, QW
     Route: 042
  4. PREDNISONE [Suspect]
     Active Substance: PREDNISONE
     Indication: Inflammatory pseudotumour
     Dosage: 20 MG, QD
     Route: 065
  5. ACETAMINOPHEN [Concomitant]
     Active Substance: ACETAMINOPHEN
     Indication: Product used for unknown indication
     Dosage: 600 MG
     Route: 048
  6. AMITRIPTYLINE [Concomitant]
     Active Substance: AMITRIPTYLINE
     Indication: Product used for unknown indication
     Dosage: 50 MG, QD
     Route: 065
  7. BENADRYL [Concomitant]
     Active Substance: DIPHENHYDRAMINE HYDROCHLORIDE
     Indication: Premedication
     Dosage: 50 MG
     Route: 048
  8. DROSPIRENONE AND ETHINYL ESTRADIOL [Concomitant]
     Active Substance: DROSPIRENONE\ETHINYL ESTRADIOL
     Indication: Product used for unknown indication
     Dosage: UNK
     Route: 065
  9. FROVATRIPTAN [Concomitant]
     Active Substance: FROVATRIPTAN
     Indication: Migraine
     Dosage: 2.5 MG
     Route: 065
  10. IBUPROFEN [Concomitant]
     Active Substance: IBUPROFEN
     Indication: Product used for unknown indication
     Dosage: UNK
     Route: 065
  11. METHYLPREDNISOLONE SODIUM SUCCINATE [Concomitant]
     Active Substance: METHYLPREDNISOLONE SODIUM SUCCINATE
     Indication: Antifungal prophylaxis
     Dosage: 100 MG
     Route: 042
  12. SEPTRA [Concomitant]
     Active Substance: SULFAMETHOXAZOLE\TRIMETHOPRIM
     Indication: Antifungal prophylaxis
     Dosage: UNK, TID
     Route: 065
  13. TYLENOL [Concomitant]
     Active Substance: ACETAMINOPHEN
     Indication: Product used for unknown indication
     Dosage: 600 MG
     Route: 048
  14. VERAPAMIL [Concomitant]
     Active Substance: VERAPAMIL HYDROCHLORIDE
     Indication: Product used for unknown indication
     Dosage: 120 MG, TID
     Route: 065
  15. VITAMIN B2 [Concomitant]
     Active Substance: RIBOFLAVIN
     Indication: Product used for unknown indication
     Dosage: UNK
     Route: 065

REACTIONS (13)
  - Blood pressure diastolic abnormal [Recovered/Resolved]
  - Blood pressure diastolic increased [Recovered/Resolved]
  - Blood pressure fluctuation [Recovered/Resolved]
  - Diplopia [Recovered/Resolved]
  - Eye haemorrhage [Recovered/Resolved]
  - Eye inflammation [Recovered/Resolved]
  - Eye pain [Recovered/Resolved]
  - Eye swelling [Recovered/Resolved]
  - Heart rate increased [Recovered/Resolved]
  - Hypertension [Recovered/Resolved]
  - Infusion related reaction [Recovered/Resolved]
  - Intentional product use issue [Recovered/Resolved]
  - Off label use [Recovered/Resolved]
